FAERS Safety Report 5988435-7 (Version None)
Quarter: 2008Q4

REPORT INFORMATION
  Report Type: 
  Country: None (occurrence: None)
  Receive Date: 20081210
  Receipt Date: 20081204
  Transmission Date: 20090506
  Serious: Yes (Hospitalization)
  Sender: FDA-Public Use
  Company Number: US-BRISTOL-MYERS SQUIBB COMPANY-14431308

PATIENT
  Age: 56 Year
  Sex: Male
  Weight: 85 kg

DRUGS (3)
  1. CISPLATIN [Suspect]
     Indication: OESOPHAGEAL CARCINOMA
     Dosage: STAR DATE OF FIRST COURSE: 20OCT08
     Dates: start: 20081124, end: 20081124
  2. TAXOL [Suspect]
     Indication: OESOPHAGEAL CARCINOMA
     Dosage: STAR DATE OF FIRST COURSE: 20OCT08
     Dates: start: 20081124, end: 20081124
  3. RADIATION THERAPY [Suspect]
     Indication: OESOPHAGEAL CARCINOMA
     Dosage: 1 DOSAGE FORM = 5040 CGY; EXTERNAL BEAM, 3D NO.OF.FRACTIONS:28; NO.OF.TREATMENT:35
     Dates: start: 20081020, end: 20081128

REACTIONS (3)
  - DEHYDRATION [None]
  - DYSPHAGIA [None]
  - OESOPHAGITIS [None]
